FAERS Safety Report 9274696 (Version 1)
Quarter: 2013Q2

REPORT INFORMATION
  Report Type: Spontaneous
  Country: FR (occurrence: None)
  Receive Date: 20130429
  Receipt Date: 20130429
  Transmission Date: 20140414
  Serious: Yes (Hospitalization)
  Sender: FDA-Public Use
  Company Number: 2013000097

PATIENT
  Age: 13 Year
  Sex: Male

DRUGS (4)
  1. ACEON [Suspect]
     Indication: CARDIOMYOPATHY
     Dates: start: 201004, end: 20130127
  2. PERFALGAN [Suspect]
  3. CLAFORAN [Suspect]
  4. SPASFON [Suspect]

REACTIONS (16)
  - Septic shock [None]
  - Cardiac failure [None]
  - Hepatocellular injury [None]
  - Hepatocellular injury [None]
  - Intestinal obstruction [None]
  - Hypokalaemia [None]
  - Blood phosphorus decreased [None]
  - Hyperlactacidaemia [None]
  - Calculus urinary [None]
  - Diarrhoea [None]
  - Hypoalbuminaemia [None]
  - Generalised oedema [None]
  - Malnutrition [None]
  - Hepatic failure [None]
  - Hyponatraemia [None]
  - White blood cell count increased [None]
